FAERS Safety Report 6832947-0 (Version None)
Quarter: 2010Q3

REPORT INFORMATION
  Report Type: 
  Country: None (occurrence: None)
  Receive Date: 20100712
  Receipt Date: 20070322
  Transmission Date: 20110219
  Serious: Yes (Other)
  Sender: FDA-Public Use
  Company Number: US-PFIZER INC-2007024548

PATIENT
  Sex: Female

DRUGS (1)
  1. CHANTIX [Suspect]
     Indication: SMOKING CESSATION THERAPY
     Dates: end: 20070321

REACTIONS (5)
  - ASTHENIA [None]
  - BODY DYSMORPHIC DISORDER [None]
  - CRYING [None]
  - DEPRESSION [None]
  - MALAISE [None]
